FAERS Safety Report 8282420-0 (Version None)
Quarter: 2012Q2

REPORT INFORMATION
  Report Type: 
  Country: None (occurrence: None)
  Receive Date: 20120413
  Receipt Date: 20120409
  Transmission Date: 20120825
  Serious: Yes (Hospitalization, Other)
  Sender: FDA-Public Use
  Company Number: US-ABBOTT-12P-163-0918559-00

PATIENT
  Sex: Male
  Weight: 60.382 kg

DRUGS (10)
  1. HUMIRA [Suspect]
     Indication: CROHN'S DISEASE
     Route: 058
     Dates: start: 20120316, end: 20120316
  2. TYLENOL (CAPLET) [Concomitant]
     Indication: PRODUCT USED FOR UNKNOWN INDICATION
  3. PROTONIX [Concomitant]
     Indication: PRODUCT USED FOR UNKNOWN INDICATION
  4. FLAGYL [Concomitant]
     Indication: COUGH
  5. HUMIRA [Suspect]
     Indication: COLITIS ULCERATIVE
     Dates: start: 20120317
  6. PROBIOTICS [Concomitant]
     Indication: COLITIS ULCERATIVE
  7. PREDNISONE [Concomitant]
     Indication: PRODUCT USED FOR UNKNOWN INDICATION
  8. CIPROFLOXACIN HCL [Concomitant]
     Dosage: INJECTION FOR INFUSION
     Route: 042
     Dates: start: 20120317, end: 20120322
  9. CIPROFLOXACIN HCL [Concomitant]
     Indication: COUGH
     Route: 047
     Dates: start: 20120312, end: 20120316
  10. CIPROFLOXACIN HCL [Concomitant]
     Route: 048
     Dates: start: 20120323

REACTIONS (20)
  - CHILLS [None]
  - MYALGIA [None]
  - JOINT SWELLING [None]
  - HAEMOGLOBIN DECREASED [None]
  - CHOLELITHIASIS [None]
  - PARAESTHESIA [None]
  - GASTROINTESTINAL PAIN [None]
  - PYREXIA [None]
  - FREQUENT BOWEL MOVEMENTS [None]
  - ARTHRALGIA [None]
  - FATIGUE [None]
  - COLITIS [None]
  - BACK PAIN [None]
  - CANDIDIASIS [None]
  - GASTROINTESTINAL HAEMORRHAGE [None]
  - HAEMATOCHEZIA [None]
  - DIARRHOEA [None]
  - PAIN [None]
  - HAEMORRHAGE [None]
  - MUSCLE SPASMS [None]
